FAERS Safety Report 4707194-9 (Version None)
Quarter: 2005Q3

REPORT INFORMATION
  Report Type: 
  Country: None (occurrence: None)
  Receive Date: 20050701
  Receipt Date: 20050622
  Transmission Date: 20060218
  Serious: Yes (Life-Threatening)
  Sender: FDA-Public Use
  Company Number: 02100-JPN-05-0297

PATIENT
  Sex: Male

DRUGS (11)
  1. CILOSTAZOL [Suspect]
     Indication: CEREBRAL INFARCTION
     Dosage: 200 MG ORAL
     Route: 048
     Dates: start: 20040508, end: 20041104
  2. CONCENTRATED GLYCERIN/FRUCTOSE [Concomitant]
  3. OZAGREL SODIUM [Concomitant]
  4. EDARAVONE [Concomitant]
  5. HEPARIN SODIUM [Concomitant]
  6. ISOTONIC SODIUM CHLORIDE SOLUTION [Concomitant]
  7. LAFUTIDINE [Concomitant]
  8. IRSOGLADINE MALEATE [Concomitant]
  9. 99 MTC-METHOXY ISOBUTYL ISONITRILE [Concomitant]
  10. CONTRAST AGENT [Concomitant]
  11. SCOPOLAMINE BUTYLBROMIDE [Concomitant]

REACTIONS (4)
  - CARDIAC VALVE DISEASE [None]
  - INTRACARDIAC THROMBUS [None]
  - MULTIPLE MYELOMA [None]
  - PROTEIN TOTAL INCREASED [None]
